FAERS Safety Report 10249061 (Version 2)
Quarter: 2014Q3

REPORT INFORMATION
  Report Type: Spontaneous
  Country: IT (occurrence: IT)
  Receive Date: 20140620
  Receipt Date: 20140704
  Transmission Date: 20150326
  Serious: Yes (Life-Threatening, Hospitalization)
  Sender: FDA-Public Use
  Company Number: IT-ASTRAZENECA-2014SE45027

PATIENT
  Age: 23528 Day
  Sex: Female

DRUGS (3)
  1. HALCION [Suspect]
     Active Substance: TRIAZOLAM
     Route: 048
     Dates: start: 20140423, end: 20140423
  2. SEROQUEL [Suspect]
     Active Substance: QUETIAPINE FUMARATE
     Route: 048
     Dates: start: 20140423, end: 20140423
  3. PAROXETINA ACTAVIS (NON-AZ PRODUCT) [Suspect]
     Active Substance: PAROXETINE\PAROXETINE HYDROCHLORIDE
     Indication: DEPRESSION
     Route: 048
     Dates: start: 20140423, end: 20140423

REACTIONS (3)
  - Suicide attempt [Recovering/Resolving]
  - Toxicity to various agents [Recovering/Resolving]
  - Respiratory failure [Unknown]

NARRATIVE: CASE EVENT DATE: 20140423
